FAERS Safety Report 9197595 (Version 1)
Quarter: 2013Q1

REPORT INFORMATION
  Report Type: Spontaneous
  Country: FR (occurrence: FR)
  Receive Date: 20130328
  Receipt Date: 20130328
  Transmission Date: 20140127
  Serious: Yes (Hospitalization)
  Sender: FDA-Public Use
  Company Number: FR-GLAXOSMITHKLINE-B0878538A

PATIENT
  Sex: Female
  Weight: 104 kg

DRUGS (3)
  1. ALKERAN [Suspect]
     Indication: PRODUCT USED FOR UNKNOWN INDICATION
     Dosage: 18MG CYCLIC
     Route: 048
     Dates: start: 20130206, end: 20130209
  2. VELCADE [Suspect]
     Indication: PRODUCT USED FOR UNKNOWN INDICATION
     Dosage: 1.3MGM2 CYCLIC
     Route: 058
     Dates: start: 20130206, end: 20130216
  3. CORTANCYL [Suspect]
     Indication: PRODUCT USED FOR UNKNOWN INDICATION
     Dosage: 80MG CYCLIC
     Route: 048
     Dates: start: 20130206, end: 20130209

REACTIONS (4)
  - Renal failure acute [Recovering/Resolving]
  - Intestinal obstruction [Recovering/Resolving]
  - Vomiting [Recovering/Resolving]
  - Hypocalcaemia [Recovered/Resolved]
